FAERS Safety Report 9126795 (Version 1)
Quarter: 2013Q1

REPORT INFORMATION
  Report Type: Spontaneous
  Country: US (occurrence: US)
  Receive Date: 20130228
  Receipt Date: 20130228
  Transmission Date: 20140127
  Serious: Yes (Other)
  Sender: FDA-Public Use
  Company Number: US-BRISTOL-MYERS SQUIBB COMPANY-15701345

PATIENT
  Age: 74 Year
  Sex: Female

DRUGS (2)
  1. RECOTHROM [Suspect]
     Indication: SURGERY
     Dosage: TOTAL OF 4 VIALS OF (3) 20,000 UNIT AND (1) 5000 UNIT.
     Route: 061
     Dates: start: 20100119, end: 20100119
  2. PLAVIX [Concomitant]

REACTIONS (1)
  - Drug ineffective [Recovered/Resolved]
